FAERS Safety Report 9136311 (Version 1)
Quarter: 2013Q1

REPORT INFORMATION
  Report Type: Spontaneous
  Country: US (occurrence: US)
  Receive Date: 20130219
  Receipt Date: 20130219
  Transmission Date: 20140127
  Serious: No
  Sender: FDA-Public Use
  Company Number: US-BRISTOL-MYERS SQUIBB COMPANY-16514796

PATIENT
  Age: 58 Year
  Sex: Female

DRUGS (4)
  1. ABATACEPT SUBQ INJECTION 125MG/ML [Suspect]
     Indication: RHEUMATOID ARTHRITIS
     Dosage: FOR OVER A YEAR,IV INF EARLIER,Q3
     Route: 058
     Dates: start: 20120410, end: 201204
  2. TYLENOL [Suspect]
     Dosage: 2 DOSES,RAPID RELEASE
  3. VITAMIN D [Concomitant]
     Dosage: 1 DF : 50000 UNITS NOS,TABS
  4. MOBIC [Concomitant]

REACTIONS (3)
  - Pruritus [Recovered/Resolved]
  - Pain [Recovered/Resolved]
  - Dyspepsia [Recovered/Resolved]
